FAERS Safety Report 23319584 (Version 1)
Quarter: 2023Q4

REPORT INFORMATION
  Report Type: Spontaneous
  Country: US (occurrence: None)
  Receive Date: 20231220
  Receipt Date: 20231220
  Transmission Date: 20240109
  Serious: No
  Sender: FDA-Public Use
  Company Number: US-ROCHE-3253573

PATIENT
  Age: 56 Year
  Sex: Male
  Weight: 99.88 kg

DRUGS (4)
  1. ACTIVASE [Suspect]
     Active Substance: ALTEPLASE
     Indication: Thrombosis
     Route: 042
     Dates: start: 202211
  2. DOVATO [Concomitant]
     Active Substance: DOLUTEGRAVIR SODIUM\LAMIVUDINE
     Route: 048
  3. LOTREL [Concomitant]
     Active Substance: AMLODIPINE BESYLATE\BENAZEPRIL HYDROCHLORIDE
     Indication: Hypertension
     Dosage: 5-10 MG CAPSULE
     Route: 048
  4. MIDAZOLAM [Concomitant]
     Active Substance: MIDAZOLAM

REACTIONS (5)
  - Off label use [Unknown]
  - Pain [Recovered/Resolved]
  - Pruritus [Recovered/Resolved]
  - Thermal burn [Unknown]
  - Agitation [Unknown]

NARRATIVE: CASE EVENT DATE: 20221101
